FAERS Safety Report 6279958-4 (Version None)
Quarter: 2009Q3

REPORT INFORMATION
  Report Type: 
  Country: None (occurrence: None)
  Receive Date: 20090723
  Receipt Date: 20090324
  Transmission Date: 20100115
  Serious: Yes (Other)
  Sender: FDA-Public Use
  Company Number: US-AMGEN-KDL324096

PATIENT
  Sex: Male

DRUGS (5)
  1. PROCRIT [Suspect]
     Indication: ANAEMIA
     Route: 058
     Dates: start: 20080522, end: 20090201
  2. RIBAVIRIN [Suspect]
     Dates: start: 20080307, end: 20090130
  3. PEGASYS [Suspect]
     Dates: start: 20080307, end: 20090130
  4. PROGRAF [Suspect]
     Dates: start: 20070801
  5. CELLCEPT [Suspect]
     Dates: start: 20070801

REACTIONS (1)
  - THERAPEUTIC RESPONSE DECREASED [None]
